FAERS Safety Report 5086206-X (Version None)
Quarter: 2006Q3

REPORT INFORMATION
  Report Type: 
  Country: None (occurrence: None)
  Receive Date: 20060823
  Receipt Date: 20060816
  Transmission Date: 20061208
  Serious: Yes (Other)
  Sender: FDA-Public Use
  Company Number: DE-JNJFOC-20060803562

PATIENT
  Age: 67 Year
  Sex: Male

DRUGS (4)
  1. REMICADE [Suspect]
     Indication: PSORIATIC ARTHROPATHY
     Route: 042
  2. REMICADE [Suspect]
     Indication: PUSTULAR PSORIASIS
     Route: 042
  3. NEOTIGASON [Concomitant]
     Route: 065
  4. NEOTIGASON [Concomitant]
     Indication: PSORIASIS
     Route: 065

REACTIONS (2)
  - JOINT STIFFNESS [None]
  - PUSTULAR PSORIASIS [None]
